FAERS Safety Report 6942057-X (Version None)
Quarter: 2010Q3

REPORT INFORMATION
  Report Type: 
  Country: None (occurrence: None)
  Receive Date: 20100826
  Receipt Date: 20100817
  Transmission Date: 20110219
  Serious: Yes (Other)
  Sender: FDA-Public Use
  Company Number: US-JNJFOC-20100805945

PATIENT
  Age: 60 Year
  Sex: Male
  Weight: 72.58 kg

DRUGS (2)
  1. REMICADE [Suspect]
     Indication: RHEUMATOID ARTHRITIS
     Dosage: 300 OR 400 MG
     Route: 042
  2. ANTIHYPERTENSIVE [Concomitant]

REACTIONS (1)
  - RENAL FAILURE [None]
